FAERS Safety Report 23506995 (Version 1)
Quarter: 2024Q1

REPORT INFORMATION
  Report Type: Spontaneous
  Country: US (occurrence: US)
  Receive Date: 20240209
  Receipt Date: 20240209
  Transmission Date: 20240409
  Serious: Yes (Hospitalization)
  Sender: FDA-Public Use
  Company Number: US-E2BLSMVVAL-SPO/USA/24/0002127

PATIENT
  Age: 85 Year
  Sex: Female

DRUGS (4)
  1. CLOZAPINE [Suspect]
     Active Substance: CLOZAPINE
     Indication: Major depression
     Dosage: 25 MG 3 TABLETS AT BED TIME EVERY DAY.
     Dates: start: 20230208
  2. CLOZAPINE [Suspect]
     Active Substance: CLOZAPINE
     Indication: Anxiety disorder
  3. CLOZAPINE [Suspect]
     Active Substance: CLOZAPINE
     Indication: Dependent personality disorder
  4. CLOZAPINE [Suspect]
     Active Substance: CLOZAPINE
     Indication: Personality disorder

REACTIONS (1)
  - Hospitalisation [Unknown]
